FAERS Safety Report 16359998 (Version 2)
Quarter: 2020Q2

REPORT INFORMATION
  Report Type: Report from Study
  Country: DE (occurrence: DE)
  Receive Date: 20190528
  Receipt Date: 20200515
  Transmission Date: 20200713
  Serious: No
  Sender: FDA-Public Use
  Company Number: DE-ROCHE-2326944

PATIENT
  Age: 25 Year
  Sex: Male
  Weight: 95 kg

DRUGS (14)
  1. TERIFLUNOMIDE. [Concomitant]
     Active Substance: TERIFLUNOMIDE
     Route: 065
     Dates: start: 201503, end: 201511
  2. INTERFERON BETA-1B [Concomitant]
     Active Substance: INTERFERON BETA-1B
     Route: 065
     Dates: start: 2013, end: 2015
  3. AERIUS (DESLORATADINE) [Concomitant]
     Active Substance: DESLORATADINE
     Route: 048
     Dates: start: 20181210, end: 20181212
  4. RANITIDINE. [Concomitant]
     Active Substance: RANITIDINE
     Route: 048
     Dates: start: 20180613, end: 20180615
  5. PREDNISOLONE. [Concomitant]
     Active Substance: PREDNISOLONE
     Route: 042
     Dates: start: 20180614, end: 20180614
  6. PREDNISOLONE. [Concomitant]
     Active Substance: PREDNISOLONE
     Route: 042
     Dates: start: 20181211, end: 20181211
  7. RAMIPRIL. [Concomitant]
     Active Substance: RAMIPRIL
     Route: 048
     Dates: start: 2015
  8. FINGOLIMOD. [Concomitant]
     Active Substance: FINGOLIMOD
     Route: 065
     Dates: start: 201601, end: 201801
  9. OCRELIZUMAB. [Suspect]
     Active Substance: OCRELIZUMAB
     Indication: MULTIPLE SCLEROSIS
     Route: 042
     Dates: start: 20180531, end: 20180614
  10. RANITIDINE. [Concomitant]
     Active Substance: RANITIDINE
     Route: 048
     Dates: start: 20180530, end: 20180601
  11. AERIUS (DESLORATADINE) [Concomitant]
     Active Substance: DESLORATADINE
     Route: 048
     Dates: start: 20180530, end: 20180601
  12. AERIUS (DESLORATADINE) [Concomitant]
     Active Substance: DESLORATADINE
     Route: 048
     Dates: start: 20180613, end: 20180615
  13. PREDNISOLUT [PREDNISOLONE HEMISUCCINATE] [Concomitant]
     Route: 042
     Dates: start: 20180531, end: 20180531
  14. DEKRISTOL [Concomitant]
     Active Substance: CHOLECALCIFEROL
     Indication: VITAMIN D DEFICIENCY
     Dosage: ONGOING
     Route: 048
     Dates: start: 20170126

REACTIONS (2)
  - Nasopharyngitis [Recovered/Resolved]
  - Respiratory tract infection [Recovered/Resolved]

NARRATIVE: CASE EVENT DATE: 20181101
